FAERS Safety Report 16412134 (Version 1)
Quarter: 2019Q2

REPORT INFORMATION
  Report Type: Other
  Country: CN (occurrence: CN)
  Receive Date: 20190610
  Receipt Date: 20190610
  Transmission Date: 20190711
  Serious: Yes (Hospitalization, Other)
  Sender: FDA-Public Use
  Company Number: CN-ALSI-201900246

PATIENT
  Age: 66 Year
  Sex: Female

DRUGS (2)
  1. OZONE [Concomitant]
     Active Substance: OZONE
     Route: 024
  2. OXYGEN. [Suspect]
     Active Substance: OXYGEN
     Indication: INTERVERTEBRAL DISC PROTRUSION
     Route: 024

REACTIONS (3)
  - Spinal cord infarction [Recovering/Resolving]
  - Paradoxical embolism [Recovering/Resolving]
  - Acute myocardial infarction [Recovering/Resolving]
